FAERS Safety Report 18809640 (Version 2)
Quarter: 2021Q1

REPORT INFORMATION
  Report Type: Spontaneous
  Country: JP (occurrence: JP)
  Receive Date: 20210129
  Receipt Date: 20210211
  Transmission Date: 20210419
  Serious: Yes (Death, Life-Threatening)
  Sender: FDA-Public Use
  Company Number: JP-PFIZER INC-081-1343-M0100036

PATIENT
  Age: 24 Year
  Sex: Male

DRUGS (9)
  1. INDINAVIR [Suspect]
     Active Substance: INDINAVIR
     Dosage: UNK
     Dates: start: 199805, end: 199808
  2. NELFINAVIR MESILATE [Suspect]
     Active Substance: NELFINAVIR MESYLATE
     Indication: HIV TEST POSITIVE
     Dosage: UNK
     Route: 048
     Dates: start: 199708, end: 199803
  3. STAVUDINE. [Suspect]
     Active Substance: STAVUDINE
     Dosage: UNK
     Dates: start: 199805, end: 199808
  4. INDINAVIR [Suspect]
     Active Substance: INDINAVIR
     Indication: HIV TEST POSITIVE
     Dosage: UNK
     Dates: start: 199608, end: 199609
  5. LAMIVUDINE. [Suspect]
     Active Substance: LAMIVUDINE
     Indication: HIV TEST POSITIVE
     Dosage: UNK
     Dates: start: 199708, end: 199803
  6. STAVUDINE. [Suspect]
     Active Substance: STAVUDINE
     Indication: HIV TEST POSITIVE
     Dosage: UNK
     Route: 065
     Dates: start: 199708, end: 199803
  7. SAQUINAVIR [Suspect]
     Active Substance: SAQUINAVIR
     Indication: HIV TEST POSITIVE
     Dosage: UNK
     Route: 065
     Dates: start: 199702, end: 199708
  8. ZALCITABINE [Suspect]
     Active Substance: ZALCITABINE
     Indication: HIV TEST POSITIVE
     Dosage: UNK
     Route: 065
     Dates: start: 199702, end: 199708
  9. DIDANOSINE. [Suspect]
     Active Substance: DIDANOSINE
     Indication: HIV TEST POSITIVE
     Dosage: UNK
     Route: 065
     Dates: start: 199805, end: 199808

REACTIONS (1)
  - Liver injury [Recovering/Resolving]

NARRATIVE: CASE EVENT DATE: 199803
